FAERS Safety Report 6877370-8 (Version None)
Quarter: 2010Q3

REPORT INFORMATION
  Report Type: 
  Country: None (occurrence: None)
  Receive Date: 20100727
  Receipt Date: 20091003
  Transmission Date: 20110219
  Serious: No
  Sender: FDA-Public Use
  Company Number: US-ABBOTT-09P-163-0601433-00

PATIENT
  Sex: Female
  Weight: 61.29 kg

DRUGS (9)
  1. SYNTHROID [Suspect]
     Indication: HYPOTHYROIDISM
     Dates: start: 19890101, end: 20090101
  2. SYNTHROID [Suspect]
     Dates: start: 20090101, end: 20090801
  3. SYNTHROID [Suspect]
     Dates: start: 20090801
  4. AMLODIPINE [Suspect]
     Indication: HYPERTENSION
     Dates: end: 20090101
  5. AMLODIPINE [Suspect]
     Dates: start: 20090101, end: 20090801
  6. AMLODIPINE [Suspect]
     Dates: start: 20090801
  7. ZOLOFT [Concomitant]
     Indication: DEPRESSION
     Dates: end: 20090101
  8. ZOLOFT [Concomitant]
     Dates: start: 20090801
  9. DIOVAN [Concomitant]
     Indication: HYPERTENSION

REACTIONS (8)
  - DEPRESSION [None]
  - DIARRHOEA [None]
  - DIZZINESS [None]
  - DYSPNOEA [None]
  - HYPERTENSION [None]
  - LABORATORY TEST ABNORMAL [None]
  - PYREXIA [None]
  - WEIGHT DECREASED [None]
